FAERS Safety Report 10924921 (Version 2)
Quarter: 2015Q2

REPORT INFORMATION
  Report Type: Spontaneous
  Country: US (occurrence: US)
  Receive Date: 20150318
  Receipt Date: 20150524
  Transmission Date: 20150821
  Serious: No
  Sender: FDA-Public Use
  Company Number: US-JNJFOC-20121105986

PATIENT
  Age: 30 Year
  Sex: Female
  Weight: 111.13 kg

DRUGS (2)
  1. NIZORAL [Suspect]
     Active Substance: KETOCONAZOLE
     Route: 061
  2. NIZORAL [Suspect]
     Active Substance: KETOCONAZOLE
     Indication: DERMATITIS
     Dosage: 1/2 DOLLAR SIZE THEN A QUARTER, ONCE OR TWICE A WEEK
     Route: 061
     Dates: start: 20120815, end: 20121108

REACTIONS (2)
  - Product use issue [Unknown]
  - Therapeutic response unexpected [Unknown]
